FAERS Safety Report 17213272 (Version 1)
Quarter: 2019Q4

REPORT INFORMATION
  Report Type: Spontaneous
  Country: IT (occurrence: IT)
  Receive Date: 20191230
  Receipt Date: 20191230
  Transmission Date: 20200122
  Serious: Yes (Other)
  Sender: FDA-Public Use
  Company Number: NVSC2019IT080038

PATIENT

DRUGS (2)
  1. PACLITAXEL. [Suspect]
     Active Substance: PACLITAXEL
     Indication: OVARIAN CANCER
     Dosage: 80 MG/M2 (ON DAYS 1, 8, AND 15 IN A 28-DAY CYCLE)
     Route: 042
  2. PAZOPANIB [Suspect]
     Active Substance: PAZOPANIB
     Indication: OVARIAN CANCER
     Dosage: 800 MG, QD (AFTER FASTING FOR AT LEAST 2 H BEFORE AND UP TO 1 H AFTER)
     Route: 065

REACTIONS (2)
  - Ileal perforation [Unknown]
  - Product use in unapproved indication [Unknown]
